FAERS Safety Report 7236472-7 (Version None)
Quarter: 2011Q1

REPORT INFORMATION
  Report Type: 
  Country: None (occurrence: None)
  Receive Date: 20110120
  Receipt Date: 20110111
  Transmission Date: 20110831
  Serious: Yes (Hospitalization)
  Sender: FDA-Public Use
  Company Number: JP-PFIZER INC-2010181114

PATIENT
  Age: 64 Year
  Sex: Male

DRUGS (3)
  1. CARDENALIN [Concomitant]
     Indication: ESSENTIAL HYPERTENSION
     Dosage: 2 MG, 1X/DAY
     Route: 048
     Dates: start: 20100619, end: 20100731
  2. OLMESARTAN MEDOXOMIL [Suspect]
     Indication: ESSENTIAL HYPERTENSION
     Dosage: 10 MG, 1X/DAY
     Route: 048
     Dates: start: 20100619, end: 20100831
  3. NORVASC [Suspect]
     Dosage: 5 MG, DAILY
     Route: 065
     Dates: start: 20100619, end: 20100907

REACTIONS (1)
  - CEREBRAL INFARCTION [None]
